FAERS Safety Report 11888759 (Version 1)
Quarter: 2016Q1

REPORT INFORMATION
  Report Type: Spontaneous
  Country: US (occurrence: None)
  Receive Date: 20160104
  Receipt Date: 20160104
  Transmission Date: 20160526
  Serious: Yes (Other)
  Sender: FDA-Public Use
  Company Number: None

PATIENT
  Age: 64 Year
  Sex: Female
  Weight: 113.4 kg

DRUGS (9)
  1. VICTOZA [Suspect]
     Active Substance: LIRAGLUTIDE
     Indication: DIABETES MELLITUS
     Dosage: I INJECTION OF .5 PER DAY ONCE DAILY GIVEN INTO/UNDER THE SKIN
     Route: 058
     Dates: start: 20151210
  2. BUPROPION HYDROCHLORIDE XL [Concomitant]
     Active Substance: BUPROPION HYDROCHLORIDE
  3. PRAMIPEXOLE. [Concomitant]
     Active Substance: PRAMIPEXOLE
  4. LEVOTHYROXIND [Concomitant]
  5. NORCO [Concomitant]
     Active Substance: ACETAMINOPHEN\HYDROCODONE BITARTRATE
  6. METFORMIN HCL [Concomitant]
     Active Substance: METFORMIN HYDROCHLORIDE
  7. METOPROLOL SUCC ER [Concomitant]
     Active Substance: METOPROLOL SUCCINATE
  8. GABAPENTIN. [Concomitant]
     Active Substance: GABAPENTIN
  9. DULL EYING HCLDR [Concomitant]

REACTIONS (1)
  - Diarrhoea [None]
